FAERS Safety Report 16374861 (Version 2)
Quarter: 2019Q2

REPORT INFORMATION
  Report Type: Report from Study
  Country: None (occurrence: US)
  Receive Date: 20190530
  Receipt Date: 20190617
  Transmission Date: 20190711
  Serious: Yes (Death)
  Sender: FDA-Public Use
  Company Number: US-ABBVIE-19K-163-2802808-00

PATIENT
  Age: 82 Year
  Sex: Male
  Weight: 49.94 kg

DRUGS (7)
  1. SINEMET [Concomitant]
     Active Substance: CARBIDOPA\LEVODOPA
     Indication: PARKINSON^S DISEASE
  2. HUMIRA [Suspect]
     Active Substance: ADALIMUMAB
     Indication: CROHN^S DISEASE
     Route: 058
     Dates: start: 2016
  3. BALSALAZIDE [Concomitant]
     Active Substance: BALSALAZIDE
     Indication: CROHN^S DISEASE
  4. ROPINIROLE. [Concomitant]
     Active Substance: ROPINIROLE
     Indication: ADJUVANT THERAPY
  5. LORAZEPAM. [Concomitant]
     Active Substance: LORAZEPAM
     Indication: SLEEP DISORDER THERAPY
  6. ACETAMINOPHEN. [Concomitant]
     Active Substance: ACETAMINOPHEN
     Indication: CROHN^S DISEASE
  7. TAMSULOSIN [Concomitant]
     Active Substance: TAMSULOSIN
     Indication: PROSTATIC DISORDER

REACTIONS (1)
  - Death [Fatal]

NARRATIVE: CASE EVENT DATE: 20190524
